FAERS Safety Report 5690114-0 (Version None)
Quarter: 2008Q1

REPORT INFORMATION
  Report Type: 
  Country: None (occurrence: None)
  Receive Date: 20080331
  Receipt Date: 20080331
  Transmission Date: 20080703
  Serious: Yes (Other)
  Sender: FDA-Public Use
  Company Number: None

PATIENT
  Age: 36 Year
  Sex: Female
  Weight: 77.1115 kg

DRUGS (1)
  1. SINGULAIR [Suspect]
     Indication: ASTHMA
     Dosage: NORMAL ADULT DOSE ONCE DAILY PO
     Route: 048
     Dates: start: 20070501, end: 20070602

REACTIONS (14)
  - ANGINA PECTORIS [None]
  - BACK PAIN [None]
  - COGNITIVE DISORDER [None]
  - EAR PAIN [None]
  - FATIGUE [None]
  - FEELING ABNORMAL [None]
  - FEELING OF DESPAIR [None]
  - HALLUCINATION [None]
  - MEMORY IMPAIRMENT [None]
  - MIDDLE INSOMNIA [None]
  - MYALGIA [None]
  - PAIN [None]
  - PALPITATIONS [None]
  - STRESS [None]
